FAERS Safety Report 8309802-2 (Version None)
Quarter: 2012Q2

REPORT INFORMATION
  Report Type: 
  Country: None (occurrence: None)
  Receive Date: 20120425
  Receipt Date: 20120420
  Transmission Date: 20120825
  Serious: Yes (Hospitalization, Other)
  Sender: FDA-Public Use
  Company Number: PHHY2012BR034263

PATIENT
  Sex: Female

DRUGS (9)
  1. FORMOTEROL FUMARATE [Suspect]
     Indication: ASTHMA
     Dosage: UNK UKN, Q12H
     Dates: start: 20120301
  2. INSULIN [Concomitant]
     Indication: DIABETES MELLITUS
     Dosage: AT THE DOSE OF 30 ML IN THE MORNING AND 18 ML IN THE AFTERNOON
  3. BEROTEC [Concomitant]
     Indication: DYSPNOEA
     Dosage: 20 DROPS
  4. ISORDIL [Concomitant]
     Indication: CARDIAC DISORDER
     Dosage: 2 DF(2X10 MG TABLET), DAILY
  5. ASPIRIN [Concomitant]
     Indication: CARDIAC DISORDER
     Dosage: 2 DF (2 TABLEST), DAILY
  6. OMEPRAZOLE [Concomitant]
     Dosage: 2 DF (2X20 MG CAPSULE), DAILY
  7. HYDRALAZINE HCL [Concomitant]
     Indication: CARDIAC DISORDER
     Dosage: 3 DF, TID (IN THE MORNING, DURING THE LUNCH AND DINNER)
     Route: 048
  8. SIMVASTATIN [Concomitant]
     Indication: CARDIAC DISORDER
     Dosage: 2 DF (2X20 MG), DAILY
  9. ATROVENT [Concomitant]
     Indication: DYSPNOEA
     Dosage: 0.25 MG/ML, 3 DROPS 4 NEBULIZATIONS DAILY

REACTIONS (6)
  - MYOCARDIAL INFARCTION [None]
  - PULMONARY OEDEMA [None]
  - ASTHMATIC CRISIS [None]
  - FATIGUE [None]
  - PRODUCTIVE COUGH [None]
  - DYSPNOEA [None]
